FAERS Safety Report 6736855-5 (Version None)
Quarter: 2010Q2

REPORT INFORMATION
  Report Type: 
  Country: None (occurrence: None)
  Receive Date: 20100521
  Receipt Date: 20100513
  Transmission Date: 20101027
  Serious: Yes (Hospitalization, Other)
  Sender: FDA-Public Use
  Company Number: US-MYLANLABS-2010S1008493

PATIENT
  Age: 32 Year
  Sex: Female
  Weight: 115.67 kg

DRUGS (5)
  1. FENTANYL CITRATE [Suspect]
     Indication: BACK PAIN
     Route: 062
     Dates: start: 20070701
  2. ACETAMINOPHEN AND HYDROCODONE BITARTRATE [Concomitant]
     Indication: BREAKTHROUGH PAIN
     Dosage: TAKES ONE OR TWO TABLETS PER WEEK
     Route: 048
     Dates: start: 20040101
  3. VITAMIN D [Concomitant]
     Route: 048
  4. LORAZEPAM [Concomitant]
     Indication: ANXIETY
     Route: 048
  5. VITAMIN B-12 [Concomitant]
     Route: 030

REACTIONS (9)
  - BACK PAIN [None]
  - BLOOD POTASSIUM DECREASED [None]
  - DIARRHOEA [None]
  - DRUG EFFECT DECREASED [None]
  - DRUG WITHDRAWAL SYNDROME [None]
  - HEPATIC CIRRHOSIS [None]
  - PYREXIA [None]
  - URINARY TRACT INFECTION [None]
  - WEIGHT DECREASED [None]
